FAERS Safety Report 15567422 (Version 2)
Quarter: 2019Q1

REPORT INFORMATION
  Report Type: Spontaneous
  Country: US (occurrence: US)
  Receive Date: 20181030
  Receipt Date: 20190116
  Transmission Date: 20190417
  Serious: No
  Sender: FDA-Public Use
  Company Number: US-PFIZER INC-2018442320

PATIENT
  Age: 61 Year
  Sex: Male

DRUGS (1)
  1. EFFEXOR [Suspect]
     Active Substance: VENLAFAXINE HYDROCHLORIDE
     Dosage: UNK

REACTIONS (1)
  - Drug hypersensitivity [Unknown]
